FAERS Safety Report 5050600-3 (Version None)
Quarter: 2006Q3

REPORT INFORMATION
  Report Type: 
  Country: None (occurrence: None)
  Receive Date: 20060713
  Receipt Date: 20060703
  Transmission Date: 20061208
  Serious: Yes (Hospitalization)
  Sender: FDA-Public Use
  Company Number: US-KINGPHARMUSA00001-K200600864

PATIENT
  Age: 64 Year
  Sex: Female

DRUGS (4)
  1. ALTACE [Suspect]
     Indication: HYPERTENSION
     Dosage: 10 MG, QD
     Route: 048
     Dates: start: 20060120
  2. BISOPROLOL FUMARATE [Concomitant]
     Indication: HYPERTENSION
     Dosage: 1 U, UNK
     Route: 048
     Dates: start: 20050404
  3. ZOCOR [Concomitant]
     Indication: HYPERCHOLESTEROLAEMIA
     Dosage: 1 U, UNK
     Route: 048
     Dates: start: 20050405
  4. ASPIRIN [Concomitant]
     Indication: ANTIPLATELET THERAPY
     Dosage: 75 MG, UNK
     Route: 048
     Dates: start: 20050405

REACTIONS (2)
  - CHEST DISCOMFORT [None]
  - PERICARDITIS [None]
